FAERS Safety Report 6478594-4 (Version None)
Quarter: 2009Q4

REPORT INFORMATION
  Report Type: 
  Country: None (occurrence: None)
  Receive Date: 20091207
  Receipt Date: 20091125
  Transmission Date: 20100525
  Serious: Yes (Hospitalization)
  Sender: FDA-Public Use
  Company Number: MX-ELI_LILLY_AND_COMPANY-MX200911000764

PATIENT
  Age: 81 Year
  Sex: Female
  Weight: 52 kg

DRUGS (8)
  1. FORTEO [Suspect]
     Indication: OSTEOPOROSIS
     Dosage: 20 U, DAILY (1/D)
     Route: 058
     Dates: start: 20080305, end: 20080305
  2. FORTEO [Suspect]
     Dosage: UNK, UNKNOWN
     Route: 065
     Dates: start: 20090101
  3. QUAL [Concomitant]
     Dosage: UNK, UNKNOWN
     Route: 065
  4. TRAMACET [Concomitant]
     Dosage: UNK, UNKNOWN
     Route: 065
  5. ANAPSIQUE [Concomitant]
     Dosage: UNK, UNKNOWN
     Route: 065
  6. RANITIDINE HYDROCHLORIDE [Concomitant]
     Indication: ULCER
     Dosage: UNK, EACH EVENING
     Route: 048
  7. INHIBITRON [Concomitant]
     Indication: ULCER
     Dosage: UNK, EACH EVENING
     Route: 048
  8. RIOPAN PLUS [Concomitant]
     Indication: ULCER
     Dosage: UNK, AS NEEDED
     Route: 048

REACTIONS (1)
  - HAEMORRHAGE [None]
